FAERS Safety Report 24754809 (Version 1)
Quarter: 2024Q4

REPORT INFORMATION
  Report Type: Spontaneous
  Country: US (occurrence: None)
  Receive Date: 20241219
  Receipt Date: 20241219
  Transmission Date: 20250115
  Serious: Yes (Disabling)
  Sender: Public
  Company Number: None

PATIENT
  Age: 57 Year
  Sex: Female
  Weight: 49.5 kg

DRUGS (4)
  1. DIHYDROERGOTAMINE [Suspect]
     Active Substance: DIHYDROERGOTAMINE
     Indication: Migraine
     Dosage: FREQUENCY : AS NEEDED;?OTHER ROUTE : NASAL SPRAY;?
     Route: 050
  2. TOPAMAX [Concomitant]
     Active Substance: TOPIRAMATE
  3. CALCIUM [Concomitant]
     Active Substance: CALCIUM
  4. ZINC [Concomitant]
     Active Substance: ZINC

REACTIONS (3)
  - Diplopia [None]
  - Product use complaint [None]
  - Product formulation issue [None]

NARRATIVE: CASE EVENT DATE: 20220701
